FAERS Safety Report 15597813 (Version 1)
Quarter: 2018Q4

REPORT INFORMATION
  Report Type: Spontaneous
  Country: JP (occurrence: JP)
  Receive Date: 20181108
  Receipt Date: 20181108
  Transmission Date: 20190205
  Serious: Yes (Other)
  Sender: FDA-Public Use
  Company Number: JP-BRACCO-2018JP04682

PATIENT
  Age: 93 Year
  Sex: Male

DRUGS (6)
  1. ALOXI [Concomitant]
     Active Substance: PALONOSETRON HYDROCHLORIDE
     Indication: TRANSCATHETER ARTERIAL CHEMOEMBOLISATION
     Dosage: DAILY DOSE .75 MG
     Route: 042
     Dates: start: 20180905
  2. IOPAMIRON [Suspect]
     Active Substance: IOPAMIDOL
     Indication: HEPATOBILIARY SCAN
     Dosage: UNK, ONCE
     Route: 013
     Dates: start: 20180905, end: 20180905
  3. ATARAX-P [Concomitant]
     Active Substance: HYDROXYZINE HYDROCHLORIDE
     Indication: TRANSCATHETER ARTERIAL CHEMOEMBOLISATION
     Dosage: DAILY DOSE 25 MG
     Route: 042
     Dates: start: 20180905
  4. CEFMETAZOLE SODIUM [Concomitant]
     Active Substance: CEFMETAZOLE SODIUM
     Indication: TRANSCATHETER ARTERIAL CHEMOEMBOLISATION
     Dosage: DAILY DOSE 2 G
     Route: 042
     Dates: start: 20180905
  5. PREDNISOLONE. [Concomitant]
     Active Substance: PREDNISOLONE
     Dosage: UNK
     Dates: start: 20180905
  6. SOSEGON [Concomitant]
     Active Substance: PENTAZOCINE
     Indication: TRANSCATHETER ARTERIAL CHEMOEMBOLISATION
     Dosage: DAILY DOSE 15 MG
     Route: 042
     Dates: start: 20180905

REACTIONS (4)
  - Presyncope [Recovered/Resolved]
  - Distributive shock [Recovered/Resolved]
  - Contraindicated product administered [Unknown]
  - Catheter site pain [Unknown]

NARRATIVE: CASE EVENT DATE: 20180905
